FAERS Safety Report 9785835 (Version 2)
Quarter: 2014Q2

REPORT INFORMATION
  Report Type: Spontaneous
  Country: FR (occurrence: FR)
  Receive Date: 20131227
  Receipt Date: 20140401
  Transmission Date: 20141212
  Serious: Yes (Life-Threatening, Hospitalization)
  Sender: FDA-Public Use
  Company Number: FR-SA-2013SA132873

PATIENT
  Age: 20 Year
  Sex: Female

DRUGS (10)
  1. ZOLPIDEM [Suspect]
     Indication: INTENTIONAL OVERDOSE
     Route: 048
     Dates: start: 20131203, end: 20131203
  2. PAROXETINE [Suspect]
     Indication: INTENTIONAL OVERDOSE
     Route: 048
     Dates: start: 20131203, end: 20131203
  3. HEPT A MYL [Suspect]
     Indication: INTENTIONAL OVERDOSE
     Route: 048
     Dates: start: 20131203, end: 20131203
  4. ESCITALOPRAM [Suspect]
     Indication: INTENTIONAL OVERDOSE
     Route: 048
     Dates: start: 20131203, end: 20131203
  5. PARACETAMOL [Suspect]
     Indication: INTENTIONAL OVERDOSE
     Route: 048
     Dates: start: 20131203, end: 20131203
  6. ABILIFY [Suspect]
     Indication: INTENTIONAL OVERDOSE
     Route: 048
     Dates: start: 20131203, end: 20131203
  7. CYMBALTA [Suspect]
     Indication: INTENTIONAL OVERDOSE
     Route: 048
     Dates: start: 20131203, end: 20131203
  8. LAMOTRIGINE [Suspect]
     Indication: INTENTIONAL OVERDOSE
     Route: 048
     Dates: start: 20131203, end: 20131203
  9. AGOMELATINE [Suspect]
     Indication: INTENTIONAL OVERDOSE
     Route: 048
     Dates: start: 20131203, end: 20131203
  10. AVLOCARDYL [Suspect]
     Indication: INTENTIONAL OVERDOSE
     Route: 048
     Dates: start: 20131203, end: 20131203

REACTIONS (5)
  - Mydriasis [Recovered/Resolved]
  - Intentional overdose [Unknown]
  - Rhabdomyolysis [Recovered/Resolved]
  - Confusional state [Recovered/Resolved]
  - Liver injury [Recovered/Resolved]
